FAERS Safety Report 10751697 (Version 2)
Quarter: 2015Q1

REPORT INFORMATION
  Report Type: Report from Study
  Country: ES (occurrence: ES)
  Receive Date: 20150130
  Receipt Date: 20150205
  Transmission Date: 20150721
  Serious: Yes (Hospitalization, Other)
  Sender: FDA-Public Use
  Company Number: PHHO2015ES001283

PATIENT
  Age: 61 Year
  Sex: Male

DRUGS (8)
  1. TRAMADOL [Concomitant]
     Active Substance: TRAMADOL
     Indication: SCIATICA
     Dosage: 50 MG, Q8H
     Route: 048
  2. INZITAN [Concomitant]
     Active Substance: CYANOCOBALAMIN\DEXAMETHASONE\LIDOCAINE HYDROCHLORIDE\THIAMINE HYDROCHLORIDE
     Dosage: 2 ML, Q48H
     Route: 030
     Dates: start: 20141113
  3. PARACETAMOL W/TRAMADOL [Concomitant]
     Indication: SCIATICA
     Dosage: 1 DF (325 MG/37.5 MG), Q8H
     Route: 048
     Dates: start: 20141215
  4. INZITAN [Concomitant]
     Active Substance: CYANOCOBALAMIN\DEXAMETHASONE\LIDOCAINE HYDROCHLORIDE\THIAMINE HYDROCHLORIDE
     Dosage: 2 ML, QD
     Route: 030
     Dates: start: 20141107, end: 20141112
  5. PARACETAMOL [Concomitant]
     Active Substance: ACETAMINOPHEN
     Indication: SCIATICA
     Dosage: 600 MG, Q8H
     Route: 048
     Dates: start: 20141215
  6. INZITAN [Concomitant]
     Active Substance: CYANOCOBALAMIN\DEXAMETHASONE\LIDOCAINE HYDROCHLORIDE\THIAMINE HYDROCHLORIDE
     Indication: SCIATICA
     Dosage: 2 ML, QD
     Route: 030
     Dates: start: 20141101
  7. GILENYA [Suspect]
     Active Substance: FINGOLIMOD HYDROCHLORIDE
     Indication: MULTIPLE SCLEROSIS
     Dosage: 0.5 MG, QD
     Route: 048
     Dates: start: 20110112, end: 20150121
  8. IBUPROFEN. [Suspect]
     Active Substance: IBUPROFEN
     Indication: SCIATICA
     Dosage: 600 MG, Q8H
     Route: 048
     Dates: start: 20141215

REACTIONS (2)
  - Anaemia [Recovering/Resolving]
  - Pneumonia bacterial [Recovering/Resolving]

NARRATIVE: CASE EVENT DATE: 20150121
